FAERS Safety Report 5788303-X (Version None)
Quarter: 2008Q2

REPORT INFORMATION
  Report Type: 
  Country: None (occurrence: None)
  Receive Date: 20080625
  Receipt Date: 20080620
  Transmission Date: 20081010
  Serious: Yes (Death)
  Sender: FDA-Public Use
  Company Number: JP-BAYER-200811306BYL

PATIENT
  Age: 80 Year
  Sex: Female

DRUGS (17)
  1. CIPROXAN-I.V. [Suspect]
     Indication: PNEUMONIA
     Route: 041
     Dates: start: 20080301, end: 20080301
  2. CIPROXAN-I.V. [Suspect]
     Dosage: TOTAL DAILY DOSE: 600 MG
     Route: 041
     Dates: start: 20080302, end: 20080305
  3. CIPROXAN-I.V. [Suspect]
     Route: 041
     Dates: start: 20080306, end: 20080306
  4. ROCEPHIN [Concomitant]
     Dosage: TOTAL DAILY DOSE: 2 G
     Route: 041
     Dates: start: 20080226, end: 20080228
  5. MEROPEN [Concomitant]
     Dosage: TOTAL DAILY DOSE: 1 G
     Route: 041
     Dates: start: 20080229, end: 20080229
  6. DALACIN-S [Concomitant]
     Dosage: TOTAL DAILY DOSE: 1.2 G
     Route: 041
     Dates: start: 20080229, end: 20080229
  7. DALACIN-S [Concomitant]
     Dosage: TOTAL DAILY DOSE: 0.6 G
     Route: 041
     Dates: start: 20080302, end: 20080303
  8. DALACIN-S [Concomitant]
     Dosage: TOTAL DAILY DOSE: 1.2 G
     Route: 041
     Dates: start: 20080304, end: 20080306
  9. DALACIN-S [Concomitant]
     Dosage: TOTAL DAILY DOSE: 0.3 G
     Route: 041
     Dates: start: 20080301, end: 20080301
  10. AMIKACIN SULFATE [Concomitant]
     Route: 042
     Dates: start: 20080306, end: 20080307
  11. TIENAM [Concomitant]
     Route: 042
     Dates: start: 20080306, end: 20080307
  12. BFLUID [Concomitant]
     Dosage: TOTAL DAILY DOSE: 1 L
     Route: 042
     Dates: start: 20080302
  13. BFLUID [Concomitant]
     Route: 042
     Dates: start: 20080301, end: 20080301
  14. LACTEC-D [Concomitant]
     Route: 042
     Dates: start: 20080301
  15. SOLU-MEDROL [Concomitant]
     Route: 042
     Dates: start: 20080301, end: 20080303
  16. PREDONINE [Concomitant]
     Dosage: TOTAL DAILY DOSE: 40 MG
     Route: 042
     Dates: start: 20080304
  17. ATARAX [Concomitant]
     Route: 030
     Dates: start: 20080306, end: 20080306

REACTIONS (2)
  - ACUTE RESPIRATORY DISTRESS SYNDROME [None]
  - BLOOD ALKALINE PHOSPHATASE INCREASED [None]
